FAERS Safety Report 22665331 (Version 3)
Quarter: 2024Q4

REPORT INFORMATION
  Report Type: Spontaneous
  Country: JP (occurrence: JP)
  Receive Date: 20230703
  Receipt Date: 20241130
  Transmission Date: 20250114
  Serious: Yes (Disabling)
  Sender: ABBVIE
  Company Number: JP-ABBVIE-5311226

PATIENT
  Age: 69 Year
  Sex: Male

DRUGS (4)
  1. ALPHAGAN P [Suspect]
     Active Substance: BRIMONIDINE TARTRATE
     Indication: Normal tension glaucoma
     Route: 047
     Dates: start: 201901, end: 20230330
  2. DIQUAFOSOL TETRASODIUM [Concomitant]
     Active Substance: DIQUAFOSOL TETRASODIUM
     Indication: Dry eye
     Dosage: 4 DROP
     Route: 047
     Dates: start: 2022, end: 20230404
  3. TIMOLOL MALEATE\TRAVOPROST [Concomitant]
     Active Substance: TIMOLOL MALEATE\TRAVOPROST
     Indication: Normal tension glaucoma
     Dosage: 1 DROP
     Route: 047
     Dates: start: 2022, end: 20230404
  4. RIPASUDIL HYDROCHLORIDE DIHYDRATE [Concomitant]
     Active Substance: RIPASUDIL HYDROCHLORIDE DIHYDRATE
     Indication: Normal tension glaucoma
     Dosage: 2 DROP
     Route: 047
     Dates: start: 2022, end: 20230404

REACTIONS (2)
  - Corneal opacity [Not Recovered/Not Resolved]
  - Conjunctival hyperaemia [Recovered/Resolved]

NARRATIVE: CASE EVENT DATE: 20230315
